FAERS Safety Report 5252454-9 (Version None)
Quarter: 2007Q1

REPORT INFORMATION
  Report Type: 
  Country: None (occurrence: None)
  Receive Date: 20070301
  Receipt Date: 20061116
  Transmission Date: 20070707
  Serious: Yes (Death)
  Sender: FDA-Public Use
  Company Number: US-BRISTOL-MYERS SQUIBB COMPANY-13580840

PATIENT
  Age: 55 Year
  Sex: Female
  Weight: 83 kg

DRUGS (6)
  1. ERBITUX [Suspect]
     Indication: COLON CANCER METASTATIC
  2. GEMZAR [Concomitant]
  3. DECADRON [Concomitant]
  4. DURAGESIC-100 [Concomitant]
  5. ZOFRAN [Concomitant]
  6. REGLAN [Concomitant]

REACTIONS (1)
  - DEATH [None]
